FAERS Safety Report 22081784 (Version 7)
Quarter: 2024Q2

REPORT INFORMATION
  Report Type: Report from Study
  Country: AR (occurrence: AR)
  Receive Date: 20230310
  Receipt Date: 20240410
  Transmission Date: 20240715
  Serious: Yes (Other)
  Sender: FDA-Public Use
  Company Number: AR-002147023-NVSC2020AR323610

PATIENT
  Sex: Female

DRUGS (4)
  1. COSENTYX [Suspect]
     Active Substance: SECUKINUMAB
     Indication: Psoriasis
     Dosage: 300 MG, QMO
     Route: 058
     Dates: start: 20191218
  2. COSENTYX [Suspect]
     Active Substance: SECUKINUMAB
     Indication: Psoriatic arthropathy
     Dosage: 300 MG, QMO
     Route: 058
     Dates: start: 202211
  3. COSENTYX [Suspect]
     Active Substance: SECUKINUMAB
     Dosage: UNK, QMO
     Route: 058
  4. COSENTYX [Suspect]
     Active Substance: SECUKINUMAB
     Dosage: UNK
     Route: 065
     Dates: end: 20230201

REACTIONS (23)
  - Parkinson^s disease [Unknown]
  - Depression [Unknown]
  - Condition aggravated [Recovering/Resolving]
  - Memory impairment [Recovering/Resolving]
  - Gait inability [Unknown]
  - Pain [Recovering/Resolving]
  - Extrapyramidal disorder [Unknown]
  - Disturbance in attention [Recovering/Resolving]
  - Spinal disorder [Unknown]
  - Ankylosing spondylitis [Unknown]
  - Spinal fracture [Not Recovered/Not Resolved]
  - Scoliosis [Not Recovered/Not Resolved]
  - Fall [Recovering/Resolving]
  - Bronchitis [Not Recovered/Not Resolved]
  - Urticaria [Not Recovered/Not Resolved]
  - Pruritus [Unknown]
  - Nervousness [Unknown]
  - Sacral pain [Unknown]
  - Psoriasis [Unknown]
  - Drug ineffective [Unknown]
  - Therapeutic product effect incomplete [Unknown]
  - Arthritis [Unknown]
  - Spinal pain [Not Recovered/Not Resolved]

NARRATIVE: CASE EVENT DATE: 20210101
